FAERS Safety Report 5838289-4 (Version None)
Quarter: 2008Q3

REPORT INFORMATION
  Report Type: 
  Country: None (occurrence: None)
  Receive Date: 20080808
  Receipt Date: 20080730
  Transmission Date: 20090109
  Serious: Yes (Hospitalization)
  Sender: FDA-Public Use
  Company Number: JP-BRISTOL-MYERS SQUIBB COMPANY-13979398

PATIENT
  Age: 34 Year
  Sex: Female

DRUGS (8)
  1. ABILIFY [Suspect]
     Indication: SCHIZOPHRENIA
     Dosage: 23JUL07 TO 30JUL07-6MG WAS GIVEN  INCREASED TO 12MG FROM 31-JUL TO 01-OCT-2007
     Route: 048
     Dates: start: 20070723, end: 20071001
  2. MAGMITT [Concomitant]
     Route: 048
  3. MYSLEE [Concomitant]
     Route: 048
  4. ROHYPNOL [Concomitant]
     Route: 048
  5. LEVOTOMIN [Concomitant]
     Route: 048
  6. PURSENNID [Concomitant]
     Route: 048
  7. RISPERDAL [Concomitant]
     Indication: SCHIZOPHRENIA
     Dosage: ON 01OCT07 DOSE INCREASED FROM 6MG TO 12MG.
     Route: 048
  8. AKINETON [Concomitant]
     Route: 048

REACTIONS (2)
  - HALLUCINATION [None]
  - PARANOIA [None]
